FAERS Safety Report 7386460-5 (Version None)
Quarter: 2011Q1

REPORT INFORMATION
  Report Type: 
  Country: None (occurrence: None)
  Receive Date: 20110329
  Receipt Date: 20110329
  Transmission Date: 20110831
  Serious: Yes (Other)
  Sender: FDA-Public Use
  Company Number: None

PATIENT
  Sex: Female
  Weight: 76.6579 kg

DRUGS (1)
  1. HYZAAR [Suspect]

REACTIONS (3)
  - OEDEMA PERIPHERAL [None]
  - HEADACHE [None]
  - BLOOD PRESSURE INCREASED [None]
